FAERS Safety Report 8060460-4 (Version None)
Quarter: 2012Q1

REPORT INFORMATION
  Report Type: 
  Country: None (occurrence: None)
  Receive Date: 20120120
  Receipt Date: 20120116
  Transmission Date: 20120608
  Serious: Yes (Other)
  Sender: FDA-Public Use
  Company Number: ES-GLAXOSMITHKLINE-B0776357A

PATIENT
  Age: 71 Year
  Sex: Male

DRUGS (10)
  1. IPRATROPIUM BROMIDE [Concomitant]
     Route: 055
  2. TRACRIUM [Concomitant]
     Route: 065
  3. ATROPINE SULFATE [Concomitant]
     Route: 065
  4. VENTOLIN [Suspect]
     Indication: ACUTE RESPIRATORY DISTRESS SYNDROME
     Dosage: 5MGML PER DAY
     Route: 055
     Dates: start: 20080731, end: 20090830
  5. ANECTINE [Concomitant]
     Route: 065
  6. DOBUTAMINE HCL [Concomitant]
     Route: 065
  7. PANTOPRAZOLE [Concomitant]
     Route: 065
  8. NORVASC [Concomitant]
     Route: 065
  9. METOCLOPRAMIDA [Concomitant]
     Route: 065
  10. PENTOXIFYLLINE [Concomitant]
     Route: 065

REACTIONS (1)
  - VENTRICULAR TACHYARRHYTHMIA [None]
